FAERS Safety Report 19501546 (Version 1)
Quarter: 2021Q3

REPORT INFORMATION
  Report Type: Spontaneous
  Country: US (occurrence: US)
  Receive Date: 20210707
  Receipt Date: 20210707
  Transmission Date: 20211014
  Serious: Yes (Hospitalization, Other)
  Sender: FDA-Public Use
  Company Number: US-AMGEN-USASP2021101706

PATIENT
  Age: 30 Year
  Sex: Male

DRUGS (4)
  1. BEVACIZUMAB. [Suspect]
     Active Substance: BEVACIZUMAB
     Indication: HYPERAMMONAEMIC ENCEPHALOPATHY
     Dosage: UNK
     Route: 065
  2. LACTULOSE. [Concomitant]
     Active Substance: LACTULOSE
     Indication: HYPERAMMONAEMIC ENCEPHALOPATHY
  3. ATEZOLIZUMAB. [Concomitant]
     Active Substance: ATEZOLIZUMAB
     Indication: HYPERAMMONAEMIC ENCEPHALOPATHY
  4. RIFAXIMIN. [Concomitant]
     Active Substance: RIFAXIMIN
     Indication: HYPERAMMONAEMIC ENCEPHALOPATHY

REACTIONS (2)
  - Off label use [Unknown]
  - Hyperammonaemic encephalopathy [Unknown]
